FAERS Safety Report 6232139-2 (Version None)
Quarter: 2009Q2

REPORT INFORMATION
  Report Type: 
  Country: None (occurrence: None)
  Receive Date: 20090617
  Receipt Date: 20090601
  Transmission Date: 20091009
  Serious: Yes (Hospitalization, Other)
  Sender: FDA-Public Use
  Company Number: US-ROCHE-637575

PATIENT
  Age: 39 Year
  Sex: Female

DRUGS (20)
  1. PEG-INTERFERON ALFA 2A (RO 25-8310) [Suspect]
     Indication: HEPATITIS C
     Route: 058
     Dates: start: 20080718
  2. PEG-INTERFERON ALFA 2A (RO 25-8310) [Suspect]
     Route: 058
     Dates: end: 20090521
  3. RIBAVIRIN [Suspect]
     Indication: HEPATITIS C
     Route: 048
     Dates: start: 20080718
  4. RIBAVIRIN [Suspect]
     Route: 048
     Dates: end: 20090528
  5. BLINDED VX-950 [Suspect]
     Indication: HEPATITIS C
     Route: 048
     Dates: start: 20080718, end: 20081007
  6. CARAFATE [Concomitant]
     Route: 048
     Dates: start: 20090423
  7. LIDOCAINE [Concomitant]
     Dosage: DRUG: VISCOUS LIDOCAINE
     Route: 048
     Dates: start: 20090423
  8. CLOTRIMAZOLE [Concomitant]
     Route: 048
     Dates: start: 20090419, end: 20090423
  9. MYCELEX [Concomitant]
     Route: 048
  10. LEXAPRO [Concomitant]
     Indication: ANXIETY
     Route: 048
  11. MAGIC MOUTHWASH NOS [Concomitant]
     Route: 048
  12. REMERON [Concomitant]
     Indication: ANXIETY
     Route: 048
  13. SEROQUEL [Concomitant]
     Indication: ANXIETY
     Route: 048
     Dates: start: 20071210
  14. ATIVAN [Concomitant]
     Indication: ANXIETY
     Route: 048
     Dates: start: 20071210
  15. KLONOPIN [Concomitant]
     Indication: ANXIETY
     Route: 048
     Dates: start: 20080724
  16. REGLAN [Concomitant]
     Route: 048
     Dates: start: 20080801, end: 20081001
  17. ALEVE [Concomitant]
     Route: 048
     Dates: start: 20080818, end: 20080925
  18. PHENERGAN [Concomitant]
     Indication: NAUSEA
     Route: 048
     Dates: start: 20080725, end: 20080727
  19. AMOXICILLIN [Concomitant]
     Indication: TOOTHACHE
     Dates: start: 20090501
  20. NYSTATIN [Concomitant]
     Dosage: START DATE REPORTED AS 2009
     Route: 048

REACTIONS (3)
  - ANAEMIA [None]
  - DEHYDRATION [None]
  - RENAL FAILURE ACUTE [None]
